FAERS Safety Report 18322389 (Version 1)
Quarter: 2020Q3

REPORT INFORMATION
  Report Type: Spontaneous
  Country: AU (occurrence: AU)
  Receive Date: 20200928
  Receipt Date: 20200928
  Transmission Date: 20201103
  Serious: Yes (Hospitalization, Other)
  Sender: FDA-Public Use
  Company Number: AU-GLAXOSMITHKLINE-US2020GSK186145

PATIENT
  Sex: Female

DRUGS (10)
  1. EFAVIRENZ. [Suspect]
     Active Substance: EFAVIRENZ
     Indication: HIV INFECTION
     Dosage: UNK
  2. ABACAVIR SULFATE + LAMIVUDINE [Suspect]
     Active Substance: ABACAVIR SULFATE\LAMIVUDINE
     Indication: HIV INFECTION
     Dosage: UNK
     Dates: start: 2012
  3. ROSUVASTATIN. [Concomitant]
     Active Substance: ROSUVASTATIN
     Indication: DYSLIPIDAEMIA
     Dosage: UNK
  4. THIAMINE. [Concomitant]
     Active Substance: THIAMINE
     Indication: PRODUCT USED FOR UNKNOWN INDICATION
     Dosage: UNK
  5. LAMIVUDINE AND ZIDOVUDINE [Suspect]
     Active Substance: LAMIVUDINE\ZIDOVUDINE
     Indication: HIV INFECTION
     Dosage: UNK
  6. ASPIRIN. [Concomitant]
     Active Substance: ASPIRIN
     Indication: MYOCARDIAL ISCHAEMIA
     Dosage: UNK
  7. MIRTAZAPINE. [Concomitant]
     Active Substance: MIRTAZAPINE
     Indication: DEPRESSION
     Dosage: UNK
  8. DARUNAVIR + RITONAVIR [Suspect]
     Active Substance: DARUNAVIR\RITONAVIR
     Indication: HIV INFECTION
     Dosage: UNK
     Dates: start: 2012
  9. COBICISTAT + ELVITEGRAVIR + EMTRICITABINE + TENOFOVIR [Suspect]
     Active Substance: COBICISTAT\ELVITEGRAVIR\EMTRICITABINE\TENOFOVIR
     Indication: HIV INFECTION
     Dosage: UNK
     Dates: start: 201601
  10. ATENOLOL. [Concomitant]
     Active Substance: ATENOLOL
     Indication: MYOCARDIAL ISCHAEMIA
     Dosage: UNK

REACTIONS (20)
  - Chorea [Recovered/Resolved]
  - Meningoencephalitis viral [Unknown]
  - Loss of personal independence in daily activities [Recovering/Resolving]
  - Hypophagia [Recovering/Resolving]
  - Magnetic resonance imaging brain abnormal [Recovering/Resolving]
  - Viral mutation identified [Unknown]
  - Meningitis viral [Unknown]
  - Dysarthria [Recovering/Resolving]
  - Gait disturbance [Recovering/Resolving]
  - HIV-associated neurocognitive disorder [Recovering/Resolving]
  - Central nervous system inflammation [Recovering/Resolving]
  - Pathogen resistance [Unknown]
  - Cerebellar syndrome [Not Recovered/Not Resolved]
  - Confusional state [Recovering/Resolving]
  - Treatment noncompliance [Unknown]
  - Parainfluenzae virus infection [Unknown]
  - Disorientation [Recovering/Resolving]
  - Dysdiadochokinesis [Recovering/Resolving]
  - Rhinitis [Unknown]
  - Behaviour disorder [Not Recovered/Not Resolved]

NARRATIVE: CASE EVENT DATE: 2012
